FAERS Safety Report 17859039 (Version 1)
Quarter: 2020Q2

REPORT INFORMATION
  Report Type: Spontaneous
  Country: CH (occurrence: CH)
  Receive Date: 20200604
  Receipt Date: 20200604
  Transmission Date: 20200714
  Serious: No
  Sender: FDA-Public Use
  Company Number: CH-B.BRAUN MEDICAL INC.-2085440

PATIENT
  Age: 45 Year
  Weight: 66 kg

DRUGS (1)
  1. HEPARIN SODIUM IN DEXTROSE [Suspect]
     Active Substance: HEPARIN SODIUM
     Dates: start: 20200404, end: 20200414

REACTIONS (1)
  - Heparin-induced thrombocytopenia [Unknown]

NARRATIVE: CASE EVENT DATE: 20200414
